FAERS Safety Report 5655672-0 (Version None)
Quarter: 2008Q1

REPORT INFORMATION
  Report Type: 
  Country: None (occurrence: None)
  Receive Date: 20080212
  Receipt Date: 20071109
  Transmission Date: 20080703
  Serious: Yes (Other)
  Sender: FDA-Public Use
  Company Number: MC200700701

PATIENT
  Age: 71 Year
  Sex: Male

DRUGS (3)
  1. ANGIOMAX [Suspect]
     Indication: THERAPEUTIC PROCEDURE
     Dosage: 1 MG/KG, HR, INTRAVENOUS
     Route: 042
     Dates: start: 20071108, end: 20071109
  2. RETEPLASE(RETEPLASE) [Suspect]
     Indication: ANTICOAGULANT THERAPY
     Dosage: INTRAVENOUS
     Route: 042
     Dates: start: 20071108, end: 20071109
  3. HEPARIN [Suspect]
     Indication: THERAPEUTIC PROCEDURE
     Dosage: SINGLE, IV BOLUS
     Route: 040
     Dates: start: 20071108, end: 20071108

REACTIONS (2)
  - ACTIVATED PARTIAL THROMBOPLASTIN TIME PROLONGED [None]
  - INTERNATIONAL NORMALISED RATIO INCREASED [None]
